FAERS Safety Report 9146376 (Version 1)
Quarter: 2013Q1

REPORT INFORMATION
  Report Type: Spontaneous
  Country: US (occurrence: None)
  Receive Date: 20130219
  Receipt Date: 20130219
  Transmission Date: 20140127
  Serious: Yes (Death)
  Sender: FDA-Public Use
  Company Number: 2013-00278

PATIENT
  Age: 48 Year
  Sex: Male

DRUGS (5)
  1. AMLODIPINE/BENAZEPRIL [Suspect]
     Indication: PRODUCT USED FOR UNKNOWN INDICATION
  2. QUETIAPINE (UNKNOWN) [Suspect]
  3. NEFAZODONE [Suspect]
  4. LORAZEPAM [Suspect]
  5. CLOZAPINE [Suspect]

REACTIONS (1)
  - Completed suicide [None]
